FAERS Safety Report 5585009-7 (Version None)
Quarter: 2008Q2

REPORT INFORMATION
  Report Type: 
  Country: None (occurrence: None)
  Receive Date: 20080109
  Receipt Date: 20071229
  Transmission Date: 20081010
  Serious: Yes (Other)
  Sender: FDA-Public Use
  Company Number: CN-JNJFOC-20080100232

PATIENT
  Age: 14 Month
  Sex: Male
  Weight: 10 kg

DRUGS (1)
  1. ANTUSS INFANTS DECONGESTANT + COUGH [Suspect]
     Indication: DRUG USE FOR UNKNOWN INDICATION
     Dosage: APPROXIMATELY 10 ML
     Route: 050

REACTIONS (5)
  - INCORRECT ROUTE OF DRUG ADMINISTRATION [None]
  - OVERDOSE [None]
  - PHARMACEUTICAL PRODUCT COUNTERFEIT [None]
  - RASH [None]
  - RHINORRHOEA [None]
